FAERS Safety Report 23819194 (Version 1)
Quarter: 2024Q2

REPORT INFORMATION
  Report Type: Spontaneous
  Country: US (occurrence: US)
  Receive Date: 20240506
  Receipt Date: 20240506
  Transmission Date: 20240716
  Serious: No
  Sender: FDA-Public Use
  Company Number: US-AUROBINDO-AUR-APL-2024-001986

PATIENT
  Age: 51 Year
  Sex: Female

DRUGS (2)
  1. DEXTROMETHORPHAN\GUAIFENESIN [Suspect]
     Active Substance: DEXTROMETHORPHAN\GUAIFENESIN
     Indication: Nasopharyngitis
     Dosage: TOOK ONLY ONE DOSE (TABLET) (LAST NIGHT)
     Route: 065
     Dates: start: 20231231, end: 20231231
  2. DEXTROMETHORPHAN\GUAIFENESIN [Suspect]
     Active Substance: DEXTROMETHORPHAN\GUAIFENESIN
     Indication: Nasal congestion

REACTIONS (3)
  - Illness [Unknown]
  - Nausea [Recovered/Resolved]
  - Dizziness [Recovered/Resolved]

NARRATIVE: CASE EVENT DATE: 20231231
